FAERS Safety Report 7712927-3 (Version None)
Quarter: 2011Q3

REPORT INFORMATION
  Report Type: 
  Country: None (occurrence: None)
  Receive Date: 20110826
  Receipt Date: 20110816
  Transmission Date: 20111222
  Serious: Yes (Other)
  Sender: FDA-Public Use
  Company Number: PHEH2011US01700

PATIENT
  Sex: Female
  Weight: 67.392 kg

DRUGS (8)
  1. EXJADE [Suspect]
     Indication: IRON OVERLOAD
     Dosage: 1000 MG
     Route: 048
     Dates: start: 20070111
  2. SODIUM BICARBONATE [Concomitant]
     Dosage: UNK UKN, UNK
  3. ALLOPURINOL [Concomitant]
     Dosage: UNK UKN, UNK
  4. LISINOPRIL [Concomitant]
     Dosage: UNK UKN, UNK
  5. ATENOLOL [Concomitant]
     Dosage: UNK UKN, UNK
  6. METOPROLOL [Concomitant]
     Dosage: UNK UKN, UNK
  7. EXJADE [Suspect]
     Dosage: 750 MG, DAILY
     Route: 048
     Dates: start: 20080923, end: 20081201
  8. FOLIC ACID [Concomitant]
     Dosage: UNK UKN, UNK

REACTIONS (9)
  - PROTEINURIA [None]
  - SERUM FERRITIN INCREASED [None]
  - WHITE BLOOD CELL COUNT INCREASED [None]
  - NEPHROPATHY [None]
  - RENAL DISORDER [None]
  - PARAESTHESIA [None]
  - HAEMOGLOBIN DECREASED [None]
  - BLOOD CREATININE INCREASED [None]
  - BLOOD PRESSURE DIASTOLIC DECREASED [None]
